FAERS Safety Report 16623088 (Version 14)
Quarter: 2022Q1

REPORT INFORMATION
  Report Type: Report from Study
  Country: GB (occurrence: GB)
  Receive Date: 20190723
  Receipt Date: 20220328
  Transmission Date: 20220423
  Serious: Yes (Life-Threatening, Hospitalization, Other)
  Sender: FDA-Public Use
  Company Number: GB-ROCHE-1677596

PATIENT
  Age: 69 Year
  Sex: Female

DRUGS (75)
  1. TRASTUZUMAB [Suspect]
     Active Substance: TRASTUZUMAB
     Indication: Breast cancer metastatic
     Dosage: 450 MG 1 TOTAL (LOADING DOSE) DOSE FORM:230; DOSGE FORM: INFUSION, SOLUTION
     Route: 041
     Dates: start: 20151105, end: 20151105
  2. TRASTUZUMAB [Suspect]
     Active Substance: TRASTUZUMAB
     Dosage: 350 MG, EVERY 3 WEEK (MAINTENANCE DOSE; DOSE FORM: 230; CUMULATIVE DOSE: 33.333332 MG)
     Route: 042
     Dates: start: 20151203, end: 20180427
  3. TRASTUZUMAB [Suspect]
     Active Substance: TRASTUZUMAB
     Dosage: 350 MG, EVERY 3 WEEK (MAINTENANCE DOSE; DOSE FORM: 230; CUMULATIVE DOSE: 33.333332 MG)
     Route: 042
     Dates: start: 20180518, end: 20190427
  4. TRASTUZUMAB [Suspect]
     Active Substance: TRASTUZUMAB
     Dosage: 336 MG, EVERY 3 WEEK, DOSE FORM: 230, (CUMULATIVE DOSE TO FIRST REACTION:14383.333MG
     Route: 042
     Dates: start: 20180518, end: 20190427
  5. TRASTUZUMAB [Suspect]
     Active Substance: TRASTUZUMAB
     Dosage: 450 MG, EVERY 3 WEEK (LOADING DOSE; DOSE FORM: 293)
     Route: 041
     Dates: start: 20151105, end: 20151105
  6. PACLITAXEL [Suspect]
     Active Substance: PACLITAXEL
     Indication: Breast cancer metastatic
     Dosage: 138 MG, EVERY 4 WEEKS
     Route: 042
     Dates: start: 20151203, end: 20160203
  7. PACLITAXEL [Suspect]
     Active Substance: PACLITAXEL
     Dosage: 120 MILLIGRAM, MONTHLY, 34.75 MG CD, 884 MG, 4.92857142 MG
     Route: 042
     Dates: start: 20160204, end: 20160218
  8. PACLITAXEL [Suspect]
     Active Substance: PACLITAXEL
     Dosage: 68 MILLIGRAM, QW, 68 MG, EVERY 1 WEEKS (DATE OF LAST ADMINISTER
     Route: 042
     Dates: start: 20160303, end: 20160310
  9. PACLITAXEL [Suspect]
     Active Substance: PACLITAXEL
     Dosage: 102 MG, EVERY 4 WEEKS (CUMULATIVE DOSE: 236.78572 MG)
     Route: 042
     Dates: start: 20160204, end: 20160218
  10. PACLITAXEL [Suspect]
     Active Substance: PACLITAXEL
     Dosage: 139 MG, EVERY 4 WEEKS (CUMULATIVE DOSE: 44.67857 MG)
     Route: 042
     Dates: start: 20151210
  11. PACLITAXEL [Suspect]
     Active Substance: PACLITAXEL
     Dosage: 120 MG, EVERY 4 WEEKS (34.75 MG CD, 884 MG, 4.92857142 MG; CUMULATIVE
     Route: 042
     Dates: start: 20160204, end: 20160218
  12. PACLITAXEL [Suspect]
     Active Substance: PACLITAXEL
     Dosage: 102 MG, EVERY 4 WEEKS (CUMULATIVED DOSE: 229.5 MG)
     Route: 042
     Dates: start: 20160204, end: 20160218
  13. PACLITAXEL [Suspect]
     Active Substance: PACLITAXEL
     Dosage: 138 MG EVERY 4 WEEKS (CUMULATIVE DOSE: 229.5 MG)
     Route: 042
     Dates: start: 20151203, end: 20160203
  14. PACLITAXEL [Suspect]
     Active Substance: PACLITAXEL
     Dosage: 68 MG, EVERY 1 WEEK (DATE OF LAST ADMINISTERED DOSE: 10-MAR-2
     Route: 042
     Dates: start: 20160303, end: 20160310
  15. DOCETAXEL [Suspect]
     Active Substance: DOCETAXEL
     Indication: Breast cancer metastatic
     Dosage: 124 MILLIGRAM, Q3W, 124 MG, EVERY 3 WEEK (CUMULATIVE DOSE: 159.42857 MG)
     Route: 042
     Dates: start: 20151106, end: 20151106
  16. DOCETAXEL [Suspect]
     Active Substance: DOCETAXEL
     Dosage: 124 MILLIGRAM, 3XW
     Route: 042
     Dates: start: 20151106, end: 20151106
  17. HERCEPTIN [Suspect]
     Active Substance: TRASTUZUMAB
     Indication: Breast cancer metastatic
     Dosage: 450 MG, TOTAL (LOADING DOSE, 16.6 MG, MAINTENANCE DOSE; DOSE FORM: 230)
     Route: 042
     Dates: start: 20151105, end: 20151105
  18. HERCEPTIN [Suspect]
     Active Substance: TRASTUZUMAB
     Dosage: 350 MG, EVERY 3 WEEKS (MAINTENANCE DOSE, DATE OF LAST ADMINISTERED DOSE: 27
     Route: 042
     Dates: start: 20151203
  19. PERTUZUMAB [Suspect]
     Active Substance: PERTUZUMAB
     Indication: Breast cancer metastatic
     Dosage: 840 MG, TOTAL (LOADING DOSE, INFUSION, SOLUTION; DOSE FORM: 23)
     Route: 042
     Dates: start: 20151105, end: 20151105
  20. PERTUZUMAB [Suspect]
     Active Substance: PERTUZUMAB
     Dosage: 420 MG, EVERY 3 WEEKS (MAINTENANCE DOSE, DOSE FORM: 230; CUMULATIVE DOSE; 40.0 MG)
     Route: 042
     Dates: start: 20151203
  21. PACLITAXEL [Suspect]
     Active Substance: PACLITAXEL
     Indication: Breast cancer metastatic
     Dosage: 138 MG EVERY 4 WEEKS (CUMULATIVE DOSE: 229.5 MG)
     Route: 042
     Dates: start: 20151203
  22. PACLITAXEL [Suspect]
     Active Substance: PACLITAXEL
     Dosage: 134 MG, EVERY 4 WEEKS (CUMULATIVE DOSE: 229.5 MG)
     Route: 042
     Dates: start: 20151210
  23. PACLITAXEL [Suspect]
     Active Substance: PACLITAXEL
     Dosage: 120 MG, EVERY 4 WEEKS (34.75 MG CD, 884 MG, 4.92857142 MG; CUMULATIVE DOSE: 229.5 MG)
     Route: 042
     Dates: start: 20160204
  24. PACLITAXEL [Suspect]
     Active Substance: PACLITAXEL
     Dosage: 68 MG, EVERY 1 WEEK (DATE OF LAST ADMINISTERED DOSE: 10-MAR-2016; CUMULATIVE DOSE: 229.5 MG)
     Route: 042
     Dates: start: 20160303
  25. PACLITAXEL [Suspect]
     Active Substance: PACLITAXEL
     Dosage: 102 MG, EVERY 4 WEEKS (CUMULATIVED DOSE: 229.5 MG)
     Route: 042
     Dates: start: 20160204, end: 20160218
  26. PACLITAXEL [Suspect]
     Active Substance: PACLITAXEL
     Dosage: 138 MILLIGRAM, MONTHLY, (138 MG EVERY 4 WEEKS (CUMULATIVE DOSE: 229.5 MG))
     Route: 042
     Dates: start: 20151203, end: 20160203
  27. LORATADINE [Concomitant]
     Active Substance: LORATADINE
     Indication: Product used for unknown indication
     Dosage: UNK
     Route: 048
     Dates: start: 20151119, end: 20151217
  28. METOCLOPRAMIDE [Concomitant]
     Active Substance: METOCLOPRAMIDE
     Indication: Prophylaxis
     Dosage: 10 MILLIGRAM, 10 MG (DOSE FORM: 245)
     Route: 048
     Dates: start: 20151203
  29. METOCLOPRAMIDE [Concomitant]
     Active Substance: METOCLOPRAMIDE
     Indication: Prophylaxis of nausea and vomiting
     Dosage: 10 MILLIGRAM
     Route: 048
     Dates: start: 20151223
  30. DEXAMETHASONE [Concomitant]
     Active Substance: DEXAMETHASONE
     Indication: Prophylaxis
     Dosage: 8 MILLIGRAM, 8 MG (DOSE FORM: 245)
     Route: 048
     Dates: start: 20151105
  31. ATORVASTATIN [Concomitant]
     Active Substance: ATORVASTATIN
     Dosage: 350 MG, Q3W (MAINTENANCE; CUMULATIVE DOSE: 33.333332 MG)
     Route: 048
  32. ATORVASTATIN [Concomitant]
     Active Substance: ATORVASTATIN
     Dosage: 40 MG, EVERY 1 DAY (DOSE FORM: 245)(CUMULATIVE DOSE TO FIRST REA
     Route: 048
     Dates: start: 20170701
  33. ATORVASTATIN [Concomitant]
     Active Substance: ATORVASTATIN
     Dosage: 40 MILLIGRAM, (40 MG, 1X/DAY)
     Route: 048
     Dates: start: 20170701
  34. TRAMADOL HYDROCHLORIDE [Concomitant]
     Active Substance: TRAMADOL HYDROCHLORIDE
     Indication: Prophylaxis
     Dosage: 50 MILLIGRAM, 50 MG (DOSE FORM: 5)
     Route: 048
     Dates: start: 20151105
  35. CLOPIDOGREL [Concomitant]
     Active Substance: CLOPIDOGREL BISULFATE
     Indication: Product used for unknown indication
     Dosage: UNK (START 01-JUL-2017)
     Route: 048
     Dates: start: 20170701
  36. TRIMETHOPRIM [Concomitant]
     Active Substance: TRIMETHOPRIM
     Indication: Urinary tract infection
     Dosage: 400 MG EVERY 1 DAY (CUMULATIVE DOSE TO FIRST REACTION: 3600.0 MG, START 10-DEC-2015)
     Route: 048
     Dates: start: 20151210
  37. TRIMETHOPRIM [Concomitant]
     Active Substance: TRIMETHOPRIM
     Dosage: 200 MILLIGRAM, BID (START 10-DEC-2015)
     Route: 048
  38. TRIMETHOPRIM [Concomitant]
     Active Substance: TRIMETHOPRIM
     Dosage: 200 MILLIGRAM, QD, (200 MG, EVERY 1 DAY (DOSE FORM: 245))
     Route: 048
     Dates: start: 20151210
  39. TRIMETHOPRIM [Concomitant]
     Active Substance: TRIMETHOPRIM
     Dosage: 200 MILLIGRAM, (200 MG EVERY 0.5 DAY)
     Route: 048
     Dates: start: 20151210
  40. TRIMETHOPRIM [Concomitant]
     Active Substance: TRIMETHOPRIM
     Dosage: 400 MILLIGRAM, (200 MG, 2X/DAY)
     Route: 048
     Dates: start: 20151210
  41. LOPERAMIDE [Concomitant]
     Active Substance: LOPERAMIDE
     Indication: Prophylaxis
     Dosage: 2 MILLIGRAM (4 TABLET TWICE A DAY FOR 3 DAYS)
     Route: 048
     Dates: start: 20151203
  42. LOPERAMIDE [Concomitant]
     Active Substance: LOPERAMIDE
     Indication: Prophylaxis against diarrhoea
     Dosage: 2 MILLIGRAM, BID, (4 TABLET TWICE A DAY FOR 3 DAYS)
     Route: 048
     Dates: start: 20151203
  43. LOPERAMIDE [Concomitant]
     Active Substance: LOPERAMIDE
     Dosage: 4 DOSAGE FORM, BID
     Route: 048
     Dates: start: 20151203
  44. RAMIPRIL [Concomitant]
     Active Substance: RAMIPRIL
     Indication: Product used for unknown indication
     Dosage: 2.5 MILLIGRAM QD, START 23-MAY-2017
     Route: 048
  45. RAMIPRIL [Concomitant]
     Active Substance: RAMIPRIL
     Dosage: 1.25 MILLIGRAM, HALF PER DAY, START 23-MAY-2017
     Route: 048
  46. RAMIPRIL [Concomitant]
     Active Substance: RAMIPRIL
     Dosage: 1.25 MILLIGRAM,1.25 MG, EVERY 1 DAY (START 23-MAY-2017)
     Route: 048
  47. RAMIPRIL [Concomitant]
     Active Substance: RAMIPRIL
     Dosage: 2.5 MILLIGRAM, (1.25 MG, 2X/DAY)
     Route: 048
     Dates: start: 20170523
  48. RAMIPRIL [Concomitant]
     Active Substance: RAMIPRIL
     Dosage: 1.25 MILLIGRAM, (1.25 MG, EVERY 0.5 DAY)
     Route: 048
     Dates: start: 20170523
  49. RAMIPRIL [Concomitant]
     Active Substance: RAMIPRIL
     Dosage: 2.5 MG, EVERY 1 DAY (DOSE FORM: 245)(CUMULATIVE DOSE TO FIRST REACTION: 1347.3959 MG)
     Route: 048
     Dates: start: 20170523
  50. ASPIRIN [Concomitant]
     Active Substance: ASPIRIN
     Dosage: 75 MILLIGRAM, QD (START 23-MAY-2017)
     Route: 048
     Dates: end: 20170701
  51. ASPIRIN [Concomitant]
     Active Substance: ASPIRIN
     Dosage: UNK
  52. LANSOPRAZOLE [Concomitant]
     Active Substance: LANSOPRAZOLE
     Indication: Product used for unknown indication
     Dosage: 30 MG, EVERY 1 DAY (START 12-MAR-2017)(CUMULATIVE DOSE TO FIRST REACTION: 14010.0 MG)
     Route: 048
  53. LANSOPRAZOLE [Concomitant]
     Active Substance: LANSOPRAZOLE
     Dosage: 30 MILLIGRAM, (30 MG, 1X/DAY)
     Route: 048
     Dates: start: 20170312
  54. LANSOPRAZOLE [Concomitant]
     Active Substance: LANSOPRAZOLE
     Dosage: 30 MILLIGRAM, QD, (30 MG, QD)
     Route: 048
     Dates: start: 20170312
  55. LANSOPRAZOLE [Concomitant]
     Active Substance: LANSOPRAZOLE
     Dosage: 30 MG, EVERY 1 DAY (DOSE FORM: 5)(CUMULATIVE DOSE TO FIRST REACTION: 14010.0 MG)
     Route: 048
     Dates: start: 20170312
  56. CETIRIZINE [Concomitant]
     Active Substance: CETIRIZINE HYDROCHLORIDE
     Indication: Prophylaxis
     Dosage: 10 MILLIGRAM (1 TABLET AT NIGHT FOR 3 DAYS)
     Route: 048
     Dates: start: 20151203
  57. CETIRIZINE [Concomitant]
     Active Substance: CETIRIZINE HYDROCHLORIDE
     Indication: Antiviral prophylaxis
     Dosage: 10 MILLIGRAM (1 TABLET AT NIGHT FOR 3 DAYS)
     Route: 048
     Dates: start: 20151203
  58. CHLORHEXIDINE GLUCONATE [Concomitant]
     Active Substance: CHLORHEXIDINE GLUCONATE
     Indication: Prophylaxis
     Dosage: 4 UNK, QD (MOUTHWASH) START 05-NOV-2015
     Route: 048
  59. CHLORHEXIDINE GLUCONATE [Concomitant]
     Active Substance: CHLORHEXIDINE GLUCONATE
     Dosage: 4 UNK, QD (MOUTHWASH) START 05-NOV-2015
     Route: 048
  60. CHLORHEXIDINE GLUCONATE [Concomitant]
     Active Substance: CHLORHEXIDINE GLUCONATE
     Dosage: UNK, (EVERY 0.25 DAY (MOUTHWASH))
     Route: 048
     Dates: start: 20151105
  61. CHLORHEXIDINE GLUCONATE [Concomitant]
     Active Substance: CHLORHEXIDINE GLUCONATE
     Dosage: UNK, (4 UNK, 1X/DAY (MOUTHWASH))
     Route: 048
     Dates: start: 20151105
  62. CHLORHEXIDINE GLUCONATE [Concomitant]
     Active Substance: CHLORHEXIDINE GLUCONATE
     Dosage: UNK, (4 EVERY 1 DAY (MOUTHWASH))
     Route: 048
     Dates: start: 20151105
  63. CHLORHEXIDINE GLUCONATE [Concomitant]
     Active Substance: CHLORHEXIDINE GLUCONATE
     Dosage: UNK, (4(NO UNIT REPORTED) EVERY 1 DAY (MOUTHWASH))
     Route: 048
     Dates: start: 20151105
  64. RANITIDINE [Concomitant]
     Active Substance: RANITIDINE
     Indication: Prophylaxis
     Dosage: 150 MILLIGRAM (1 TABLET TWICE A DAY FOR 3 DAYS)
     Route: 048
     Dates: start: 20151203
  65. EZETIMIBE [Concomitant]
     Active Substance: EZETIMIBE
     Indication: Product used for unknown indication
     Dosage: UNK (DOSE FORM:245) START : 2019
     Route: 048
  66. EZETIMIBE [Concomitant]
     Active Substance: EZETIMIBE
     Dosage: UNK
     Route: 048
     Dates: start: 2019
  67. ROSUVASTATIN [Concomitant]
     Active Substance: ROSUVASTATIN
     Indication: Product used for unknown indication
     Dosage: 5 MG (DOSE FORM:245) (START JUN-2018)
     Route: 048
     Dates: end: 201911
  68. ROSUVASTATIN [Concomitant]
     Active Substance: ROSUVASTATIN
     Dosage: UNK
  69. ROSUVASTATIN [Concomitant]
     Active Substance: ROSUVASTATIN
     Dosage: 5 MILLIGRAM, (5 MG)
     Route: 048
     Dates: start: 201806, end: 201911
  70. ASPIRIN [Concomitant]
     Active Substance: ASPIRIN
     Dosage: (75 MG EVERY 1 DAY (CUMULATIVE DOSE TO FIRST REACTION: 40421
     Route: 048
     Dates: start: 20170523, end: 20170701
  71. ASPIRIN [Concomitant]
     Active Substance: ASPIRIN
     Dosage: 75 MILLIGRAM, (75 MG, 1X/DAY)
     Route: 048
     Dates: start: 20170523, end: 20170701
  72. ASPIRIN [Concomitant]
     Active Substance: ASPIRIN
     Dosage: 75 MILLIGRAM, QD
     Route: 048
     Dates: start: 20170523, end: 20170701
  73. ROSUVASTATIN CALCIUM [Concomitant]
     Active Substance: ROSUVASTATIN CALCIUM
     Dosage: 5 MILLIGRAM, (5 MG)
     Route: 048
     Dates: start: 201806, end: 201911
  74. ROSUVASTATIN CALCIUM [Concomitant]
     Active Substance: ROSUVASTATIN CALCIUM
     Dosage: UNK
  75. TRAMADOL [Concomitant]
     Active Substance: TRAMADOL
     Indication: Prophylaxis
     Dosage: 50 MILLIGRAM, (50 MG (DOSE FORM: 5))
     Route: 048
     Dates: start: 20151105

REACTIONS (22)
  - Anaphylactic reaction [Recovered/Resolved]
  - Cystitis noninfective [Recovered/Resolved]
  - Defaecation urgency [Recovered/Resolved]
  - Tendonitis [Not Recovered/Not Resolved]
  - Palmar erythema [Recovered/Resolved]
  - Mucosal inflammation [Recovered/Resolved]
  - Tremor [Recovered/Resolved]
  - Erythema [Recovered/Resolved]
  - Bacterial test positive [Recovered/Resolved]
  - Urosepsis [Recovered/Resolved]
  - Neuropathy peripheral [Recovered/Resolved]
  - Urinary tract infection [Recovered/Resolved]
  - Hypersensitivity [Recovered/Resolved]
  - Diarrhoea [Recovered/Resolved]
  - Malaise [Recovered/Resolved]
  - Fatigue [Recovered/Resolved]
  - Rash [Recovered/Resolved]
  - Hypertension [Recovered/Resolved]
  - Dyspnoea [Recovered/Resolved]
  - Escherichia test positive [Not Recovered/Not Resolved]
  - Dysuria [Recovered/Resolved]
  - Chest discomfort [Recovered/Resolved]

NARRATIVE: CASE EVENT DATE: 20151201
